FAERS Safety Report 8552118-X (Version None)
Quarter: 2012Q3

REPORT INFORMATION
  Report Type: 
  Country: None (occurrence: None)
  Receive Date: 20120731
  Receipt Date: 20120718
  Transmission Date: 20120928
  Serious: No
  Sender: FDA-Public Use
  Company Number: US-BIOGENIDEC-2012BI026900

PATIENT
  Sex: Male

DRUGS (4)
  1. TYSABRI [Suspect]
     Route: 042
  2. AVONEX [Concomitant]
     Indication: MULTIPLE SCLEROSIS
     Route: 030
     Dates: start: 20071101
  3. AVONEX [Concomitant]
     Route: 030
     Dates: start: 20080801
  4. TYSABRI [Suspect]
     Indication: MULTIPLE SCLEROSIS
     Route: 042
     Dates: start: 20071003, end: 20111201

REACTIONS (5)
  - FEELING ABNORMAL [None]
  - MACULAR DEGENERATION [None]
  - PAIN [None]
  - INFLUENZA LIKE ILLNESS [None]
  - MALAISE [None]
